FAERS Safety Report 25850134 (Version 2)
Quarter: 2025Q3

REPORT INFORMATION
  Report Type: Spontaneous
  Country: US (occurrence: US)
  Receive Date: 20250926
  Receipt Date: 20250929
  Transmission Date: 20251020
  Serious: No
  Sender: AXSOME THERAPEUTICS
  Company Number: US-AXS-AXS202508-001527

PATIENT
  Age: 55 Year
  Sex: Female

DRUGS (1)
  1. AUVELITY [Suspect]
     Active Substance: BUPROPION HYDROCHLORIDE\DEXTROMETHORPHAN HYDROBROMIDE
     Indication: Major depression
     Route: 048

REACTIONS (2)
  - Memory impairment [Recovered/Resolved]
  - Cognitive disorder [Recovered/Resolved]
